FAERS Safety Report 23779916 (Version 1)
Quarter: 2024Q2

REPORT INFORMATION
  Report Type: Spontaneous
  Country: GB (occurrence: GB)
  Receive Date: 20240424
  Receipt Date: 20240424
  Transmission Date: 20240716
  Serious: Yes (Other)
  Sender: FDA-Public Use
  Company Number: None

PATIENT
  Age: 75 Year
  Sex: Female

DRUGS (20)
  1. METHOTREXATE SODIUM [Suspect]
     Active Substance: METHOTREXATE SODIUM
     Dosage: UNK
     Dates: end: 202206
  2. GLANDOSANE [CALCIUM CHLORIDE DIHYDRATE;CARMELLOSE SODIUM;MAGNESIUM CHL [Concomitant]
     Dosage: TOBE USED WHEN REQUIRED 50 ML - PATIENT STATES USING PRIOR TO ADMISSION
     Dates: start: 20230627
  3. ORAMORPH SR SUSTAINED RELEASE [Concomitant]
     Active Substance: MORPHINE SULFATE
     Dosage: 1.25-2.5ML EVERY 4-6 HRS FOR BREAKTHROUGH PAIN 100 ML - PATIENT STATES NOT TAKING PRIOR TO ADMISSION
     Dates: start: 20230627
  4. CODEINE [Concomitant]
     Active Substance: CODEINE
     Dosage: ONE OR TWO TO BE TAKEN EVERY FOUR HOURS WHEN NECESSARY. MAXIMUM 8 IN 24 HOURS
  5. CHOLECALCIFEROL [Concomitant]
     Active Substance: CHOLECALCIFEROL
     Dosage: 1.5 G, 1X/DAY
  6. CHLORPHENIRAMINE MALEATE [Concomitant]
     Active Substance: CHLORPHENIRAMINE MALEATE
     Dosage: AT NIGHT.  PATIENT STATES TAKING PRIOR TO ADMISSION
     Dates: start: 20230607
  7. METOCLOPRAMIDE [Concomitant]
     Active Substance: METOCLOPRAMIDE
     Dosage: 10MG THREE TIMES A DAY. PATIENT STATES TAKING PRN.
  8. FELODIPINE [Concomitant]
     Active Substance: FELODIPINE
     Dosage: EACH MORNING
     Dates: start: 20230426
  9. ACETAMINOPHEN [Concomitant]
     Active Substance: ACETAMINOPHEN
     Dosage: 500 MG, 500MG. TWO, FOUR TIMES A DAY. PATIENT STATES TAKING PRN
  10. CHOLESTYRAMINE [Concomitant]
     Active Substance: CHOLESTYRAMINE
     Dosage: 1 SACHET TWICE A DAY
  11. LOSARTAN [Concomitant]
     Active Substance: LOSARTAN
     Dosage: PATIENT STATES NOT TAKING PRIOR TO ADMISSION (STOPPED 06/23) - NOTE HYPERTENSIVE SO LEFT ON
  12. BISOPROLOL [Concomitant]
     Active Substance: BISOPROLOL\BISOPROLOL FUMARATE
     Dosage: EACH MORNING
  13. FOLIC ACID [Concomitant]
     Active Substance: FOLIC ACID
     Dosage: PATIENT STATES NOT TAKING PRIOR TO ADMISSION (STOPPED 03/23) , 5X/WEEK
  14. ALENDRONIC ACID [Concomitant]
     Active Substance: ALENDRONIC ACID
     Dosage: ON THE SAME DAY EACH WEEK. WEDNESDAY.
  15. LEVOTHYROXINE [Concomitant]
     Active Substance: LEVOTHYROXINE\LEVOTHYROXINE SODIUM
     Dosage: 25/50/100MCG.
  16. CALCIUM CARBONATE [Concomitant]
     Active Substance: CALCIUM CARBONATE
     Dosage: 1.5 G, 1X/DAY
  17. CARBOXYMETHYLCELLULOSE [Concomitant]
     Active Substance: CARBOXYMETHYLCELLULOSE
     Dosage: EACH EYE
  18. LORATADINE [Concomitant]
     Active Substance: LORATADINE
     Dosage: PATIENT STATES NOT TAKING PRIOR TO ADMISSION
     Dates: start: 20230425
  19. LANSOPRAZOLE [Concomitant]
     Active Substance: LANSOPRAZOLE
  20. PREDNISOLONE [Concomitant]
     Active Substance: PREDNISOLONE
     Dosage: PATIENT STATES COURSE FINISHED.

REACTIONS (1)
  - Non-alcoholic steatohepatitis [Unknown]
